FAERS Safety Report 10856079 (Version 2)
Quarter: 2015Q1

REPORT INFORMATION
  Report Type: Spontaneous
  Country: SE (occurrence: SE)
  Receive Date: 20150223
  Receipt Date: 20150302
  Transmission Date: 20150721
  Serious: Yes (Other)
  Sender: FDA-Public Use
  Company Number: SE-ACTAVIS-2015-00016

PATIENT
  Age: 65 Year
  Sex: Female

DRUGS (2)
  1. LOSARTAN ACTAVIS [Suspect]
     Active Substance: LOSARTAN
     Dosage: 12.5 MG, DAILY
     Route: 065
     Dates: start: 20141222
  2. LOSARTAN ACTAVIS [Suspect]
     Active Substance: LOSARTAN
     Indication: HYPERTENSION
     Dosage: UNK, LOW DOSE
     Route: 065

REACTIONS (5)
  - Eye irritation [Unknown]
  - Tachycardia [Recovered/Resolved]
  - Hypotension [Recovered/Resolved]
  - Eye haemorrhage [Recovering/Resolving]
  - Cold sweat [Recovered/Resolved]

NARRATIVE: CASE EVENT DATE: 20141231
